FAERS Safety Report 15296500 (Version 1)
Quarter: 2018Q3

REPORT INFORMATION
  Report Type: Spontaneous
  Country: US (occurrence: US)
  Receive Date: 20180820
  Receipt Date: 20180820
  Transmission Date: 20181010
  Serious: No
  Sender: FDA-Public Use
  Company Number: US-SA-2018SA229838

PATIENT
  Age: 58 Year
  Sex: Male
  Weight: 79.37 kg

DRUGS (24)
  1. SODIUM CHLORIDE. [Concomitant]
     Active Substance: SODIUM CHLORIDE
     Indication: FLUSHING
     Dosage: 0.9 %
     Route: 042
     Dates: start: 20180710
  2. LOXAPINE. [Concomitant]
     Active Substance: LOXAPINE
     Dosage: 1 DF, QD
     Route: 048
     Dates: start: 20171128
  3. PAROXETINE. [Concomitant]
     Active Substance: PAROXETINE
     Dosage: 1 DF, QD
     Route: 048
     Dates: start: 20160428
  4. IBUPROFEN. [Concomitant]
     Active Substance: IBUPROFEN
     Dosage: 1 DF
     Route: 048
     Dates: start: 20180428
  5. SUBOXONE [Concomitant]
     Active Substance: BUPRENORPHINE HYDROCHLORIDE\NALOXONE HYDROCHLORIDE
     Dosage: 1 DF, QOW
     Route: 048
     Dates: start: 20170725
  6. SEROQUEL [Concomitant]
     Active Substance: QUETIAPINE FUMARATE
     Dosage: 1 DF, HS
     Route: 048
     Dates: start: 20160428
  7. AMITRIPTYLINE [Concomitant]
     Active Substance: AMITRIPTYLINE
     Dosage: 1 DF, QD
     Dates: start: 20141210
  8. EPINEPHRINE. [Concomitant]
     Active Substance: EPINEPHRINE
     Indication: ANAPHYLACTIC REACTION
     Dosage: 0.3 MG, PRN
     Dates: start: 20180710
  9. NOVOLOG [Concomitant]
     Active Substance: INSULIN ASPART
     Dosage: 1 DF, TID
     Route: 058
     Dates: start: 20160428
  10. TRIAMCINOLONE [Concomitant]
     Active Substance: TRIAMCINOLONE
     Dosage: 1 DF, PRN
     Dates: start: 20141210
  11. METHIONINE [Concomitant]
     Active Substance: METHIONINE
     Dosage: 1 DF, QD
     Route: 048
     Dates: start: 20141210
  12. CEREZYME [Suspect]
     Active Substance: IMIGLUCERASE
     Indication: FABRY^S DISEASE
     Dosage: 4000 UN, QOW
     Route: 041
  13. BUTALBITAL, ACETAMINOPHEN, AND CAFFEINE [Concomitant]
     Active Substance: ACETAMINOPHEN\BUTALBITAL\CAFFEINE
     Dosage: 1 DF, BID
     Route: 048
     Dates: start: 20141210
  14. LANTUS [Concomitant]
     Active Substance: INSULIN GLARGINE
     Dosage: 60 UN, QD
     Route: 058
     Dates: start: 20160428
  15. TRAZODONE [Concomitant]
     Active Substance: TRAZODONE HYDROCHLORIDE
     Dosage: 1 DF, HS
     Route: 048
     Dates: start: 20150702
  16. LISINOPRIL. [Concomitant]
     Active Substance: LISINOPRIL
     Dosage: 1 DF, QD
     Route: 048
     Dates: start: 20141210
  17. NORMAL SALINE [Concomitant]
     Active Substance: SODIUM CHLORIDE
     Indication: FLUSHING
     Dosage: 0.9 %
     Route: 042
     Dates: start: 20180710
  18. GLIMEPIRIDE. [Concomitant]
     Active Substance: GLIMEPIRIDE
     Dosage: 1 DF, QD
     Route: 048
     Dates: start: 20160428
  19. ZYPREXA [Concomitant]
     Active Substance: OLANZAPINE
     Dosage: 1 DF, HS
     Dates: start: 20150702
  20. LOVASTATIN. [Concomitant]
     Active Substance: LOVASTATIN
     Dosage: 1 DF, QD
     Route: 048
     Dates: start: 20141210
  21. METFORMIN [Concomitant]
     Active Substance: METFORMIN HYDROCHLORIDE
     Dosage: 1 DF, QD
     Route: 048
     Dates: start: 20141210
  22. STERILE WATER [Concomitant]
     Active Substance: WATER
     Indication: LARYNGEAL REPAIR
     Dosage: 1 DF
     Route: 042
     Dates: start: 20180710
  23. REMERON [Concomitant]
     Active Substance: MIRTAZAPINE
     Dosage: 1 DF, HS
     Route: 048
     Dates: start: 20170625
  24. AMBIEN [Concomitant]
     Active Substance: ZOLPIDEM TARTRATE
     Dosage: 1 DF, HS
     Route: 048
     Dates: start: 20150702

REACTIONS (3)
  - Gait inability [Unknown]
  - Headache [Unknown]
  - Abdominal pain [Unknown]
